FAERS Safety Report 10424981 (Version 1)
Quarter: 2014Q3

REPORT INFORMATION
  Report Type: Spontaneous
  Country: US (occurrence: None)
  Receive Date: 20140722
  Receipt Date: 20140722
  Transmission Date: 20150326
  Serious: Yes (Hospitalization, Other)
  Sender: FDA-Public Use
  Company Number: 2014-001744

PATIENT
  Age: 57 Year
  Sex: Female

DRUGS (13)
  1. LEVOCETIRIZINE [Concomitant]
     Active Substance: LEVOCETIRIZINE
  2. ALPRAZOLAM. [Concomitant]
     Active Substance: ALPRAZOLAM
  3. ZOLPIDEM [Concomitant]
     Active Substance: ZOLPIDEM\ZOLPIDEM TARTRATE
  4. ZOLEDRONIC ACID [Concomitant]
     Active Substance: ZOLEDRONIC ACID
  5. ANASTROZOLE. [Concomitant]
     Active Substance: ANASTROZOLE
  6. RANITIDINE [Concomitant]
     Active Substance: RANITIDINE\RANITIDINE HYDROCHLORIDE
  7. VITAMIN D [Concomitant]
     Active Substance: CHOLECALCIFEROL
  8. MILNACIPRAN [Suspect]
     Active Substance: MILNACIPRAN
     Indication: FIBROMYALGIA
  9. TRAMADOL HYDROCHLORIDE. [Suspect]
     Active Substance: TRAMADOL HYDROCHLORIDE
  10. SARAFEM [Suspect]
     Active Substance: FLUOXETINE HYDROCHLORIDE
  11. DOXAZOSIN [Concomitant]
     Active Substance: DOXAZOSIN\DOXAZOSIN MESYLATE
  12. FERROUS GLUCONATE [Concomitant]
     Active Substance: FERROUS GLUCONATE
  13. DOXEPIN [Suspect]
     Active Substance: DOXEPIN

REACTIONS (3)
  - Rash morbilliform [None]
  - Serotonin syndrome [None]
  - Incorrect dose administered [None]
